FAERS Safety Report 10716780 (Version 1)
Quarter: 2015Q1

REPORT INFORMATION
  Report Type: Report from Study
  Country: US (occurrence: US)
  Receive Date: 20150116
  Receipt Date: 20150116
  Transmission Date: 20150721
  Serious: Yes (Other)
  Sender: FDA-Public Use
  Company Number: PHEH2014US007541

PATIENT
  Age: 57 Year
  Sex: Female

DRUGS (2)
  1. EXTAVIA [Suspect]
     Active Substance: INTERFERON BETA-1B
     Dosage: 0.25 MG (1 ML), QOD (0.3 MG VIAL)
     Route: 058
  2. EXTAVIA [Suspect]
     Active Substance: INTERFERON BETA-1B
     Indication: MULTIPLE SCLEROSIS
     Dosage: 0.25 MG, QOD (0.25MG/ML)
     Route: 058
     Dates: start: 20100303

REACTIONS (12)
  - Abnormal behaviour [Unknown]
  - Appendicitis [Unknown]
  - Dyspepsia [Unknown]
  - Nasopharyngitis [Unknown]
  - Sinus congestion [Unknown]
  - Influenza like illness [Unknown]
  - Limb injury [Not Recovered/Not Resolved]
  - Haemorrhage [Not Recovered/Not Resolved]
  - Flatulence [Unknown]
  - Malaise [Unknown]
  - Pain [Unknown]
  - Incorrect product storage [Unknown]

NARRATIVE: CASE EVENT DATE: 201404
